FAERS Safety Report 10404506 (Version 1)
Quarter: 2014Q2

REPORT INFORMATION
  Report Type: Spontaneous
  Country: US (occurrence: None)
  Receive Date: 20140514
  Receipt Date: 20140514
  Transmission Date: 20141212
  Serious: Yes (Hospitalization)
  Sender: FDA-Public Use
  Company Number: 096702

PATIENT
  Age: 46 Year
  Sex: Male

DRUGS (4)
  1. CIMZIA [Suspect]
     Indication: CROHN^S DISEASE
     Dosage: (400MG 1X/4 WEEKS)
     Dates: start: 20121029
  2. PREDNISONE [Concomitant]
  3. CIPRO [Concomitant]
  4. FLAGYL [Concomitant]

REACTIONS (1)
  - Crohn^s disease [None]
